FAERS Safety Report 7659409-5 (Version None)
Quarter: 2011Q3

REPORT INFORMATION
  Report Type: 
  Country: None (occurrence: None)
  Receive Date: 20110805
  Receipt Date: 20110802
  Transmission Date: 20111222
  Serious: Yes (Disabling, Other)
  Sender: FDA-Public Use
  Company Number: BR-PFIZER INC-2011177015

PATIENT
  Age: 26 Year
  Sex: Male
  Weight: 85 kg

DRUGS (1)
  1. ADVIL LIQUI-GELS [Suspect]
     Indication: MIGRAINE
     Dosage: UNK
     Route: 048
     Dates: end: 20110731

REACTIONS (13)
  - CORNEAL DISORDER [None]
  - INSOMNIA [None]
  - IMPAIRED WORK ABILITY [None]
  - BLINDNESS [None]
  - VISUAL IMPAIRMENT [None]
  - PHOTOPHOBIA [None]
  - ACCIDENTAL EXPOSURE [None]
  - EYE PAIN [None]
  - IMPAIRED DRIVING ABILITY [None]
  - EYE IRRITATION [None]
  - HEADACHE [None]
  - RETCHING [None]
  - VISION BLURRED [None]
